FAERS Safety Report 4463273-5 (Version None)
Quarter: 2004Q3

REPORT INFORMATION
  Report Type: 
  Country: None (occurrence: None)
  Receive Date: 20040930
  Receipt Date: 20040920
  Transmission Date: 20050211
  Serious: Yes (Death)
  Sender: FDA-Public Use
  Company Number: IL-GLAXOSMITHKLINE-B0346509A

PATIENT

DRUGS (2)
  1. COTRIMOXAZOLE [Suspect]
     Route: 065
  2. METHOTREXATE [Suspect]
     Route: 065

REACTIONS (4)
  - BACTERIAL SEPSIS [None]
  - CANDIDIASIS [None]
  - DRUG INTERACTION [None]
  - PANCYTOPENIA [None]
